FAERS Safety Report 7952035-X (Version None)
Quarter: 2011Q4

REPORT INFORMATION
  Report Type: 
  Country: None (occurrence: None)
  Receive Date: 20111201
  Receipt Date: 20111116
  Transmission Date: 20120403
  Serious: Yes (Other)
  Sender: FDA-Public Use
  Company Number: IT-WATSON-2011-20018

PATIENT
  Age: 33 Year
  Sex: Female

DRUGS (1)
  1. FLUOROURACIL [Suspect]
     Indication: HEPATIC NEOPLASM MALIGNANT
     Dosage: UNK
     Route: 042

REACTIONS (4)
  - EJECTION FRACTION DECREASED [None]
  - ECG SIGNS OF MYOCARDIAL ISCHAEMIA [None]
  - CHEST PAIN [None]
  - CARDIOTOXICITY [None]
